FAERS Safety Report 21938066 (Version 1)
Quarter: 2023Q1

REPORT INFORMATION
  Report Type: Spontaneous
  Country: US (occurrence: None)
  Receive Date: 20230201
  Receipt Date: 20230201
  Transmission Date: 20230417
  Serious: No
  Sender: FDA-Public Use
  Company Number: US-Invatech-000280

PATIENT
  Age: 17 Year
  Sex: Male

DRUGS (1)
  1. AMANTADINE [Suspect]
     Active Substance: AMANTADINE
     Indication: Product used for unknown indication
     Dosage: 100 MG CAPSULE, ORANGE CAPSULE WITH AN IMPRINT IT 76
     Route: 048
     Dates: start: 20221207

REACTIONS (1)
  - Dizziness [Unknown]
